FAERS Safety Report 6030842-0 (Version None)
Quarter: 2009Q1

REPORT INFORMATION
  Report Type: 
  Country: None (occurrence: None)
  Receive Date: 20090107
  Receipt Date: 20081222
  Transmission Date: 20090719
  Serious: Yes (Hospitalization, Other)
  Sender: FDA-Public Use
  Company Number: IT-GENENTECH-274953

PATIENT
  Age: 65 Year
  Sex: Female

DRUGS (8)
  1. TRASTUZUMAB [Suspect]
     Indication: BREAST CANCER
     Dosage: UNK
     Route: 065
  2. EPIRUBICIN [Suspect]
     Indication: BREAST CANCER
     Dosage: UNK
     Route: 065
  3. CYCLOPHOSPHAMIDE [Suspect]
     Indication: BREAST CANCER
     Dosage: UNK
     Route: 065
  4. PACLITAXEL [Suspect]
     Indication: BREAST CANCER
     Dosage: UNK
     Route: 065
  5. DEXAMETHASONE [Suspect]
     Indication: SCIATICA
     Route: 048
  6. METHYLPREDNISOLONE 16MG TAB [Suspect]
     Indication: INTERSTITIAL LUNG DISEASE
     Dosage: 80 MG, UNK
     Route: 065
  7. FENTANYL-100 [Concomitant]
     Indication: SCIATICA
     Dosage: UNK
     Route: 062
  8. GABAPENTIN [Concomitant]
     Indication: SCIATICA
     Dosage: UNK

REACTIONS (8)
  - BLOOD PRESSURE INADEQUATELY CONTROLLED [None]
  - DEPRESSION [None]
  - DIABETES MELLITUS [None]
  - GUILLAIN-BARRE SYNDROME [None]
  - INTERSTITIAL LUNG DISEASE [None]
  - INTERVERTEBRAL DISC PROTRUSION [None]
  - RESPIRATORY DISTRESS [None]
  - SCIATICA [None]
